FAERS Safety Report 5599287-1 (Version None)
Quarter: 2008Q1

REPORT INFORMATION
  Report Type: 
  Country: None (occurrence: None)
  Receive Date: 20080117
  Receipt Date: 20080111
  Transmission Date: 20080703
  Serious: Yes (Death)
  Sender: FDA-Public Use
  Company Number: DSJ-2008-00285

PATIENT
  Age: 58 Year
  Sex: Male
  Weight: 59 kg

DRUGS (2)
  1. OLMESARTAN MEDOXOMIL [Suspect]
     Indication: ESSENTIAL HYPERTENSION
     Dosage: 20 MG (20 MG, 1 IN 1 D),PER ORAL
     Route: 048
     Dates: start: 20061018, end: 20070319
  2. INDAPAMIDE [Suspect]
     Dosage: 1 MG (1 MG, 1 IN 1 D) ,PER ORAL
     Route: 048
     Dates: start: 20070124, end: 20070319

REACTIONS (3)
  - ARRHYTHMIA [None]
  - CONDITION AGGRAVATED [None]
  - SUDDEN DEATH [None]
